FAERS Safety Report 17076257 (Version 1)
Quarter: 2019Q4

REPORT INFORMATION
  Report Type: Report from Study
  Country: US (occurrence: US)
  Receive Date: 20191126
  Receipt Date: 20191126
  Transmission Date: 20200122
  Serious: Yes (Other)
  Sender: FDA-Public Use
  Company Number: US-MYLANLABS-2019M1103768

PATIENT
  Age: 70 Year
  Sex: Female
  Weight: 96.61 kg

DRUGS (1)
  1. GLATIRAMER ACETATE INJECTION [Suspect]
     Active Substance: GLATIRAMER ACETATE
     Indication: MULTIPLE SCLEROSIS
     Dosage: 40 MILLIGRAM, 3XW
     Route: 058
     Dates: start: 201910

REACTIONS (4)
  - Cellulitis [Recovered/Resolved]
  - Injection site erythema [Not Recovered/Not Resolved]
  - Cerebrovascular accident [Unknown]
  - Device defective [Unknown]

NARRATIVE: CASE EVENT DATE: 20191016
